FAERS Safety Report 7934576-4 (Version None)
Quarter: 2011Q4

REPORT INFORMATION
  Report Type: 
  Country: None (occurrence: None)
  Receive Date: 20111122
  Receipt Date: 20111107
  Transmission Date: 20120403
  Serious: Yes (Death, Hospitalization)
  Sender: FDA-Public Use
  Company Number: US-WATSON-2011-18903

PATIENT
  Sex: Female
  Weight: 102 kg

DRUGS (7)
  1. PREDNISONE TAB [Concomitant]
     Indication: ASTHMA
     Dosage: DAILY
     Route: 048
  2. INHALER [Concomitant]
     Indication: ASTHMA
     Dosage: DAILY
     Route: 065
  3. XOPENEX [Concomitant]
     Indication: ASTHMA
     Dosage: DAILY
     Route: 065
  4. DIABETES MEDS [Concomitant]
     Indication: DIABETES MELLITUS
     Dosage: DAILY
     Route: 048
  5. FENTANYL-100 [Suspect]
     Indication: BACK PAIN
     Dosage: 1 PATCH EVERY 72 HOURS
     Route: 062
     Dates: start: 20100601
  6. ANTIHYPERTENSIVES [Concomitant]
     Indication: HYPERTENSION
     Dosage: DAILY
     Route: 048
  7. FENTANYL-50 [Suspect]
     Indication: BACK PAIN
     Dosage: 1 PATCH EVERY 72 HOURS
     Route: 062
     Dates: start: 20100601

REACTIONS (11)
  - ASTHMA [None]
  - OVERDOSE [None]
  - APPLICATION SITE RASH [None]
  - CARDIAC ARREST [None]
  - INCOHERENT [None]
  - OXYGEN SATURATION DECREASED [None]
  - FEELING DRUNK [None]
  - APPLICATION SITE IRRITATION [None]
  - PULSE ABSENT [None]
  - BALANCE DISORDER [None]
  - AMNESIA [None]
